FAERS Safety Report 7587566-8 (Version None)
Quarter: 2011Q3

REPORT INFORMATION
  Report Type: 
  Country: None (occurrence: None)
  Receive Date: 20110704
  Receipt Date: 20110620
  Transmission Date: 20111222
  Serious: Yes (Other)
  Sender: FDA-Public Use
  Company Number: PHHY2011US54683

PATIENT
  Sex: Male

DRUGS (16)
  1. GLEEVEC [Suspect]
     Dosage: 0.5 DF, QD
     Route: 048
     Dates: start: 20110401
  2. GLIPIZIDE [Concomitant]
     Dosage: UNK UKN, UNK
  3. AMLODIPINE [Concomitant]
     Dosage: UNK UKN, UNK
  4. BENADRYL [Concomitant]
     Dosage: UNK UKN, UNK
  5. GLEEVEC [Suspect]
     Indication: LEUKOCYTOSIS
     Dosage: 400 MG, QD
     Route: 048
  6. SYNTHROID [Concomitant]
     Dosage: UNK UKN, UNK
  7. VITAMIN B-12 [Concomitant]
     Dosage: UNK UKN, UNK
  8. GLUCOSAMINE W/CHONDROITIN [Concomitant]
     Dosage: UNK UKN, UNK
  9. VALACYCLOVIR [Concomitant]
     Dosage: UNK UKN, UNK
  10. METAMUCIL-2 [Concomitant]
     Dosage: UNK UKN, UNK
  11. BISOPROLOL FUMARATE [Concomitant]
     Dosage: UNK UKN, UNK
  12. CRESTOR [Concomitant]
     Dosage: UNK UKN, UNK
  13. ASPIRIN [Concomitant]
     Dosage: UNK UKN, UNK
  14. NEURONTIN [Concomitant]
     Dosage: UNK UKN, UNK
  15. METFORMIN HCL [Concomitant]
     Dosage: UNK UKN, UNK
  16. LISINOPRIL [Concomitant]
     Dosage: UNK UKN, UNK

REACTIONS (7)
  - BACK PAIN [None]
  - PAIN IN EXTREMITY [None]
  - NECK PAIN [None]
  - DIARRHOEA [None]
  - RASH [None]
  - ABDOMINAL DISCOMFORT [None]
  - MYELOPROLIFERATIVE DISORDER [None]
